FAERS Safety Report 5313481-6 (Version None)
Quarter: 2007Q2

REPORT INFORMATION
  Report Type: 
  Country: None (occurrence: None)
  Receive Date: 20070424
  Receipt Date: 20070413
  Transmission Date: 20071010
  Serious: Yes (Other)
  Sender: FDA-Public Use
  Company Number: 2007-01096

PATIENT
  Age: 82 Year
  Sex: Female

DRUGS (2)
  1. VELCADE [Suspect]
     Indication: MULTIPLE MYELOMA
     Dosage: IV DRIP
     Route: 041
     Dates: start: 20070323, end: 20070324
  2. DEXAMETHASONE 0.5MG TAB [Concomitant]

REACTIONS (2)
  - ATRIAL FIBRILLATION [None]
  - CHEST PAIN [None]
